FAERS Safety Report 13820037 (Version 1)
Quarter: 2017Q3

REPORT INFORMATION
  Report Type: Spontaneous
  Country: IN (occurrence: IN)
  Receive Date: 20170801
  Receipt Date: 20170801
  Transmission Date: 20171127
  Serious: No
  Sender: FDA-Public Use
  Company Number: IN-LUPIN PHARMACEUTICALS INC.-2017-02448

PATIENT
  Sex: Male

DRUGS (4)
  1. RAMISTAR [Suspect]
     Active Substance: RAMIPRIL
     Indication: BLOOD PRESSURE ABNORMAL
     Dosage: 1 DF, BID
     Route: 048
     Dates: end: 20170516
  2. NOVASTAT [Concomitant]
     Indication: LIPIDS ABNORMAL
     Dosage: 1 DF, QD
     Route: 048
  3. AMARYL M [Concomitant]
     Active Substance: GLIMEPIRIDE\METFORMIN
     Indication: DIABETES MELLITUS
     Dosage: 1 DF, QD
     Route: 048
  4. RAMISTAR [Suspect]
     Active Substance: RAMIPRIL
     Dosage: 1 DF, BID
     Route: 048
     Dates: start: 20170516

REACTIONS (3)
  - Blood pressure increased [Unknown]
  - Product quality issue [Unknown]
  - Drug ineffective [Unknown]

NARRATIVE: CASE EVENT DATE: 20170516
